FAERS Safety Report 21290615 (Version 1)
Quarter: 2022Q3

REPORT INFORMATION
  Report Type: Report from Study
  Country: DE (occurrence: DE)
  Receive Date: 20220903
  Receipt Date: 20220903
  Transmission Date: 20221026
  Serious: Yes (Other)
  Sender: FDA-Public Use
  Company Number: DE-MLMSERVICE-20200121-2127588-1

PATIENT
  Age: 69 Year
  Sex: Male

DRUGS (13)
  1. DOXORUBICIN [Suspect]
     Active Substance: DOXORUBICIN
     Indication: Non-Hodgkin^s lymphoma
     Dosage: UNK
     Route: 042
     Dates: start: 2008
  2. DOXORUBICIN [Suspect]
     Active Substance: DOXORUBICIN
     Dosage: UNK
     Route: 042
     Dates: start: 2009
  3. RIBAVIRIN [Suspect]
     Active Substance: RIBAVIRIN
     Dosage: 1000 MILLIGRAM, ONCE A DAY
     Route: 065
  4. RIBAVIRIN [Suspect]
     Active Substance: RIBAVIRIN
     Dosage: 1000 MILLIGRAM, ONCE A DAY
     Route: 065
     Dates: start: 201807, end: 201811
  5. RIBAVIRIN [Suspect]
     Active Substance: RIBAVIRIN
     Dosage: 800 MILLIGRAM, ONCE A DAY
     Route: 065
  6. CYCLOPHOSPHAMIDE [Suspect]
     Active Substance: CYCLOPHOSPHAMIDE
     Indication: Non-Hodgkin^s lymphoma
     Dosage: UNK
     Route: 042
     Dates: start: 2008
  7. CYCLOPHOSPHAMIDE [Suspect]
     Active Substance: CYCLOPHOSPHAMIDE
     Dosage: UNK
     Route: 042
     Dates: start: 2009
  8. MABTHERA [Suspect]
     Active Substance: RITUXIMAB
     Indication: Non-Hodgkin^s lymphoma
     Dosage: UNK (IN COMBINATION WITH CHOP)
     Route: 042
     Dates: start: 2008
  9. MABTHERA [Suspect]
     Active Substance: RITUXIMAB
     Dosage: UNK (IN COMBINATION WITH CHOP)
     Route: 042
     Dates: start: 2009
  10. PREDNISOLONE [Suspect]
     Active Substance: PREDNISOLONE
     Indication: Non-Hodgkin^s lymphoma
     Dosage: UNK
     Route: 042
     Dates: start: 2008
  11. PREDNISOLONE [Suspect]
     Active Substance: PREDNISOLONE
     Dosage: UNK
     Route: 042
     Dates: start: 2009
  12. VINCRISTINE SULFATE [Suspect]
     Active Substance: VINCRISTINE SULFATE
     Indication: Non-Hodgkin^s lymphoma
     Dosage: UNK
     Route: 065
     Dates: start: 2008
  13. VINCRISTINE SULFATE [Suspect]
     Active Substance: VINCRISTINE SULFATE
     Dosage: UNK
     Route: 065
     Dates: start: 2009

REACTIONS (10)
  - Insomnia [Unknown]
  - Hepatitis E [Unknown]
  - Suspected transmission of an infectious agent via product [Unknown]
  - Fatigue [Unknown]
  - CD4 lymphocyte percentage decreased [Unknown]
  - Lymphopenia [Unknown]
  - Hypogammaglobulinaemia [Unknown]
  - Off label use [Unknown]
  - B-lymphocyte count decreased [Unknown]
  - Drug resistance [Unknown]

NARRATIVE: CASE EVENT DATE: 20181101
